FAERS Safety Report 13002029 (Version 3)
Quarter: 2017Q1

REPORT INFORMATION
  Report Type: Spontaneous
  Country: US (occurrence: US)
  Receive Date: 20161206
  Receipt Date: 20170201
  Transmission Date: 20170428
  Serious: No
  Sender: FDA-Public Use
  Company Number: US-ASTRAZENECA-2016SF24683

PATIENT
  Sex: Male

DRUGS (2)
  1. SYMBICORT [Suspect]
     Active Substance: BUDESONIDE\FORMOTEROL FUMARATE DIHYDRATE
     Indication: ARRHYTHMIA
     Dosage: 160/4.5 MCG 2 PUFFS TWICE A DAY AS NEEDED FOR YEARS
     Route: 055
  2. SYMBICORT [Suspect]
     Active Substance: BUDESONIDE\FORMOTEROL FUMARATE DIHYDRATE
     Indication: PULMONARY SARCOIDOSIS
     Dosage: 160/4.5 MCG 2 PUFFS TWICE A DAY AS NEEDED FOR YEARS
     Route: 055

REACTIONS (5)
  - Gastrooesophageal reflux disease [Unknown]
  - Device malfunction [Unknown]
  - Expired product administered [Unknown]
  - Product use issue [Unknown]
  - Off label use [Unknown]
